FAERS Safety Report 14856112 (Version 1)
Quarter: 2018Q2

REPORT INFORMATION
  Report Type: Spontaneous
  Country: US (occurrence: US)
  Receive Date: 20180507
  Receipt Date: 20180507
  Transmission Date: 20180711
  Serious: No
  Sender: FDA-Public Use
  Company Number: US-ROCHE-2003755

PATIENT
  Age: 73 Year
  Sex: Female
  Weight: 79.45 kg

DRUGS (1)
  1. ESBRIET [Suspect]
     Active Substance: PIRFENIDONE
     Indication: PRODUCT USED FOR UNKNOWN INDICATION
     Route: 048
     Dates: start: 2017, end: 20170910

REACTIONS (4)
  - Dysphagia [Not Recovered/Not Resolved]
  - Dehydration [Recovered/Resolved]
  - Weight increased [Unknown]
  - Fungal infection [Unknown]

NARRATIVE: CASE EVENT DATE: 201709
